FAERS Safety Report 22206102 (Version 2)
Quarter: 2023Q2

REPORT INFORMATION
  Report Type: Spontaneous
  Country: CN (occurrence: CN)
  Receive Date: 20230413
  Receipt Date: 20230420
  Transmission Date: 20230721
  Serious: Yes (Other)
  Sender: FDA-Public Use
  Company Number: None

PATIENT
  Age: 22 Year
  Sex: Male

DRUGS (1)
  1. FINASTERIDE [Suspect]
     Active Substance: FINASTERIDE
     Indication: Androgenetic alopecia
     Dosage: UNK, QD
     Route: 065

REACTIONS (14)
  - Libido decreased [Unknown]
  - Testicular pain [Unknown]
  - Psychiatric symptom [Unknown]
  - Fatigue [Unknown]
  - Anxiety [Unknown]
  - Orgasm abnormal [Unknown]
  - Male reproductive tract disorder [Unknown]
  - Dizziness [Unknown]
  - Amnesia [Unknown]
  - Tremor [Unknown]
  - Depression [Unknown]
  - Insomnia [Unknown]
  - Suicidal ideation [Unknown]
  - Erectile dysfunction [Unknown]
